FAERS Safety Report 14341872 (Version 1)
Quarter: 2018Q1

REPORT INFORMATION
  Report Type: Spontaneous
  Country: DE (occurrence: DE)
  Receive Date: 20180102
  Receipt Date: 20180102
  Transmission Date: 20180509
  Serious: Yes (Hospitalization, Other)
  Sender: FDA-Public Use
  Company Number: DE-WEST-WARD PHARMACEUTICAL CORP.-DE-H14001-17-05276

PATIENT
  Age: 77 Year
  Sex: Male
  Weight: 92.6 kg

DRUGS (33)
  1. CARVEDILOL HEXAL [Suspect]
     Active Substance: CARVEDILOL
     Indication: SINUS BRADYCARDIA
     Route: 048
     Dates: start: 20161019, end: 20161101
  2. ENTRESTO [Suspect]
     Active Substance: SACUBITRIL\VALSARTAN
     Route: 048
     Dates: start: 20160727
  3. ALLOPURINOL HEXAL [Concomitant]
     Active Substance: ALLOPURINOL
     Indication: PRODUCT USED FOR UNKNOWN INDICATION
     Route: 065
  4. BISOPROLOL RATIOPHARM [Concomitant]
     Active Substance: BISOPROLOL
     Indication: PRODUCT USED FOR UNKNOWN INDICATION
     Dosage: 0.5 DF, QD
     Route: 065
  5. ASS ^HEXAL^ [Concomitant]
     Active Substance: ASPIRIN
     Indication: CORONARY ARTERY DISEASE
     Route: 065
  6. TORASEMID HEXAL [Concomitant]
     Indication: RIGHT VENTRICULAR FAILURE
     Route: 065
     Dates: start: 20161018, end: 20161027
  7. TORASEMIDE [Concomitant]
     Active Substance: TORSEMIDE
     Route: 048
     Dates: start: 20170411
  8. TORASEMIDE [Concomitant]
     Active Substance: TORSEMIDE
     Route: 048
     Dates: start: 20161017, end: 20161017
  9. BISOPROLOL FUMARATE. [Concomitant]
     Active Substance: BISOPROLOL FUMARATE
     Indication: CARDIAC FAILURE CONGESTIVE
     Route: 048
     Dates: start: 20161102
  10. AMLODIPINE [Concomitant]
     Active Substance: AMLODIPINE BESYLATE
     Indication: HYPERTENSION
     Route: 065
  11. SPIRONOLACTONE. [Concomitant]
     Active Substance: SPIRONOLACTONE
     Indication: CARDIAC FAILURE CHRONIC
     Route: 048
     Dates: start: 20161002
  12. CARVEDILOL HEXAL [Suspect]
     Active Substance: CARVEDILOL
     Indication: RIGHT VENTRICULAR FAILURE
     Route: 048
     Dates: start: 2016, end: 20161018
  13. TORASEMIDE [Concomitant]
     Active Substance: TORSEMIDE
     Route: 048
     Dates: start: 20161014, end: 20161014
  14. SIMVASTATIN - 1 A PHARMA [Concomitant]
     Indication: CORONARY ARTERY DISEASE
     Route: 065
  15. ENTRESTO [Suspect]
     Active Substance: SACUBITRIL\VALSARTAN
     Route: 048
     Dates: start: 20161002
  16. ENTRESTO [Suspect]
     Active Substance: SACUBITRIL\VALSARTAN
     Route: 048
     Dates: start: 20160311, end: 20160503
  17. ALDACTONE [Concomitant]
     Active Substance: SPIRONOLACTONE
     Indication: RIGHT VENTRICULAR FAILURE
     Dosage: )
     Route: 065
  18. TORASEMIDE [Concomitant]
     Active Substance: TORSEMIDE
     Route: 048
     Dates: start: 20161002
  19. CARVEDILOL. [Concomitant]
     Active Substance: CARVEDILOL
     Indication: CARDIAC FAILURE CHRONIC
     Route: 048
     Dates: start: 20170111, end: 20170321
  20. CARVEDILOL. [Concomitant]
     Active Substance: CARVEDILOL
     Route: 048
     Dates: start: 20170323
  21. FURORESE [Concomitant]
     Active Substance: FUROSEMIDE
     Indication: PRODUCT USED FOR UNKNOWN INDICATION
     Route: 065
  22. CARVEDILOL. [Concomitant]
     Active Substance: CARVEDILOL
     Route: 048
     Dates: end: 20161023
  23. AMLODIPIN [Concomitant]
     Active Substance: AMLODIPINE BESYLATE
     Indication: CARDIAC FAILURE CHRONIC
     Route: 048
  24. SALBUTAMOL-RATIOPHARM N [Concomitant]
     Indication: CHRONIC OBSTRUCTIVE PULMONARY DISEASE
     Route: 055
     Dates: start: 20161014
  25. URAPIDIL [Concomitant]
     Active Substance: URAPIDIL
     Indication: PULMONARY OEDEMA
     Route: 042
     Dates: start: 20161215, end: 20161215
  26. AMIODARONE [Suspect]
     Active Substance: AMIODARONE
     Indication: PRODUCT USED FOR UNKNOWN INDICATION
     Route: 065
  27. ENTRESTO [Suspect]
     Active Substance: SACUBITRIL\VALSARTAN
     Indication: CARDIAC FAILURE CHRONIC
     Route: 048
     Dates: start: 20160504, end: 20160726
  28. CARVEDILOL. [Concomitant]
     Active Substance: CARVEDILOL
     Route: 048
  29. TORASEMIDE [Concomitant]
     Active Substance: TORSEMIDE
     Indication: CARDIAC FAILURE CHRONIC
     Route: 048
     Dates: start: 20161018
  30. CARVEDILOL. [Concomitant]
     Active Substance: CARVEDILOL
     Route: 048
     Dates: end: 20161023
  31. CARVEDILOL. [Concomitant]
     Active Substance: CARVEDILOL
     Route: 048
     Dates: start: 20161024, end: 20161101
  32. ELIQUIS [Concomitant]
     Active Substance: APIXABAN
     Indication: ATRIAL FIBRILLATION
     Route: 065
  33. SPIRIVA [Concomitant]
     Active Substance: TIOTROPIUM BROMIDE MONOHYDRATE
     Indication: CHRONIC OBSTRUCTIVE PULMONARY DISEASE
     Route: 065
     Dates: start: 20161018

REACTIONS (20)
  - Oedema peripheral [Not Recovered/Not Resolved]
  - Dizziness [Recovered/Resolved]
  - Hypotension [Unknown]
  - Hypothyroidism [Recovering/Resolving]
  - Dyspnoea [Unknown]
  - Tachypnoea [Unknown]
  - Atelectasis [Unknown]
  - Respiratory failure [Recovered/Resolved]
  - Vertigo [Recovered/Resolved]
  - Hypokalaemia [Not Recovered/Not Resolved]
  - Urinary tract infection [Recovering/Resolving]
  - Pericardial effusion [Unknown]
  - Benign prostatic hyperplasia [Not Recovered/Not Resolved]
  - Sinus bradycardia [Recovered/Resolved]
  - Pulmonary oedema [Recovered/Resolved]
  - Cardiac failure [Recovered/Resolved]
  - Wheezing [Unknown]
  - Electrocardiogram QT prolonged [Recovered/Resolved]
  - Acute kidney injury [Not Recovered/Not Resolved]
  - Pleural effusion [Unknown]

NARRATIVE: CASE EVENT DATE: 20161018
